FAERS Safety Report 7397398-1 (Version None)
Quarter: 2011Q2

REPORT INFORMATION
  Report Type: 
  Country: None (occurrence: None)
  Receive Date: 20110406
  Receipt Date: 20110330
  Transmission Date: 20111010
  Serious: Yes (Hospitalization)
  Sender: FDA-Public Use
  Company Number: US-ABBOTT-11P-163-0715693-00

PATIENT
  Sex: Female
  Weight: 68.1 kg

DRUGS (15)
  1. HUMIRA [Suspect]
     Indication: RHEUMATOID ARTHRITIS
     Route: 058
     Dates: start: 20081201, end: 20110101
  2. KEPRA XR [Concomitant]
     Indication: PRODUCT USED FOR UNKNOWN INDICATION
     Dosage: 750 AM 1500 HS
  3. ALPHAGAN [Concomitant]
     Indication: GLAUCOMA
  4. CLARITIN [Concomitant]
     Indication: PRODUCT USED FOR UNKNOWN INDICATION
  5. M.V.I. [Concomitant]
     Indication: PRODUCT USED FOR UNKNOWN INDICATION
  6. POTASSIUM CHLORIDE [Concomitant]
     Indication: PRODUCT USED FOR UNKNOWN INDICATION
  7. BIOTIN [Concomitant]
     Indication: PRODUCT USED FOR UNKNOWN INDICATION
  8. D3 [Concomitant]
     Indication: PRODUCT USED FOR UNKNOWN INDICATION
  9. NAPROSYN [Concomitant]
     Indication: PRODUCT USED FOR UNKNOWN INDICATION
  10. CALCIUM CARBONTE [Concomitant]
     Indication: PRODUCT USED FOR UNKNOWN INDICATION
  11. FLONASE [Concomitant]
     Indication: PRODUCT USED FOR UNKNOWN INDICATION
  12. ZOMEG [Concomitant]
     Indication: MIGRAINE
  13. METHOTREXATE [Concomitant]
     Indication: PRODUCT USED FOR UNKNOWN INDICATION
     Dosage: 7.5 MG, 2 DAYS IN A ROW, WEEKLY
  14. HUMIRA [Suspect]
     Route: 058
     Dates: start: 20110101
  15. ASCORBIC ACID [Concomitant]
     Indication: PRODUCT USED FOR UNKNOWN INDICATION

REACTIONS (10)
  - GRAND MAL CONVULSION [None]
  - PERTUSSIS [None]
  - TONGUE DISCOLOURATION [None]
  - BACK PAIN [None]
  - POSTICTAL STATE [None]
  - MEMORY IMPAIRMENT [None]
  - RHEUMATOID ARTHRITIS [None]
  - SINUSITIS [None]
  - BLOOD CREATINE PHOSPHOKINASE INCREASED [None]
  - TONGUE INJURY [None]
